FAERS Safety Report 6568709-1 (Version None)
Quarter: 2010Q1

REPORT INFORMATION
  Report Type: 
  Country: None (occurrence: None)
  Receive Date: 20100203
  Receipt Date: 20100127
  Transmission Date: 20100710
  Serious: Yes (Other)
  Sender: FDA-Public Use
  Company Number: PHHY2010DE04964

PATIENT
  Sex: Female
  Weight: 53 kg

DRUGS (8)
  1. CGS 20267 T30748+ [Suspect]
     Indication: BREAST CANCER
     Dosage: 2.5 MG, QD
     Route: 048
     Dates: start: 20090721, end: 20090723
  2. CREON [Concomitant]
     Dosage: 1-1-1
     Dates: start: 20000101
  3. SPIRONOLACTONE [Concomitant]
     Dosage: 1-0-1
  4. ALLOPURINOL [Concomitant]
     Dosage: 1-0-0
     Dates: start: 20010101
  5. DOCTON [Concomitant]
     Dosage: 1-1-1
  6. PANTOPRAZOLE [Concomitant]
     Dosage: 1-0-0
     Dates: start: 20010101
  7. ULOGANT [Concomitant]
  8. INSULIN [Concomitant]
     Dosage: UNK
     Dates: start: 20020101

REACTIONS (1)
  - JAUNDICE [None]
